FAERS Safety Report 15251253 (Version 1)
Quarter: 2018Q3

REPORT INFORMATION
  Report Type: Spontaneous
  Country: US (occurrence: US)
  Receive Date: 20180717
  Receipt Date: 20180717
  Transmission Date: 20181010
  Serious: Yes (Other)
  Sender: FDA-Public Use
  Company Number: None

PATIENT
  Age: 53 Year
  Sex: Female
  Weight: 72.57 kg

DRUGS (3)
  1. FLUTICASONE PROPIONATE NASAL SPRAY [Suspect]
     Active Substance: FLUTICASONE PROPIONATE
     Indication: SINUS DISORDER
     Dates: start: 20180511
  2. IBUPROFEN 600 MG [Concomitant]
     Active Substance: IBUPROFEN
  3. MELOXICAM. [Concomitant]
     Active Substance: MELOXICAM

REACTIONS (7)
  - Swelling [None]
  - Pain [None]
  - Sensation of foreign body [None]
  - Neck pain [None]
  - Agitation [None]
  - Dysphonia [None]
  - Painful respiration [None]

NARRATIVE: CASE EVENT DATE: 20180430
